FAERS Safety Report 25336684 (Version 1)
Quarter: 2025Q2

REPORT INFORMATION
  Report Type: Spontaneous
  Country: NZ (occurrence: NZ)
  Receive Date: 20250520
  Receipt Date: 20250520
  Transmission Date: 20250716
  Serious: Yes (Other)
  Sender: LEO PHARM
  Company Number: NZ-LEO Pharma-379162

PATIENT
  Sex: Female

DRUGS (1)
  1. ENSTILAR [Suspect]
     Active Substance: BETAMETHASONE DIPROPIONATE\CALCIPOTRIENE HYDRATE
     Indication: Psoriasis

REACTIONS (5)
  - Steroid withdrawal syndrome [Unknown]
  - Erythema [Unknown]
  - Skin burning sensation [Unknown]
  - Skin swelling [Unknown]
  - Skin exfoliation [Unknown]
